FAERS Safety Report 7988194-2 (Version None)
Quarter: 2011Q4

REPORT INFORMATION
  Report Type: 
  Country: None (occurrence: None)
  Receive Date: 20111216
  Receipt Date: 20110120
  Transmission Date: 20120403
  Serious: No
  Sender: FDA-Public Use
  Company Number: US-BRISTOL-MYERS SQUIBB COMPANY-15443617

PATIENT
  Age: 42 Year
  Sex: Female

DRUGS (3)
  1. ABILIFY [Suspect]
     Indication: BIPOLAR II DISORDER
     Dosage: STARTED AS 2 MG AND THEN INCREASED TO 5MG,10MG
     Route: 048
     Dates: start: 20101006
  2. EFFEXOR XR [Concomitant]
  3. LITHIUM CARBONATE [Concomitant]
     Dosage: RECEIVED FOR 20YRS RESTARTED

REACTIONS (3)
  - RASH [None]
  - VISION BLURRED [None]
  - DYSPNOEA [None]
